FAERS Safety Report 14259578 (Version 1)
Quarter: 2017Q4

REPORT INFORMATION
  Report Type: Spontaneous
  Country: IT (occurrence: IT)
  Receive Date: 20171207
  Receipt Date: 20171207
  Transmission Date: 20180321
  Serious: Yes (Hospitalization)
  Sender: FDA-Public Use
  Company Number: IT-PFIZER INC-2017274943

PATIENT
  Age: 64 Year
  Sex: Female

DRUGS (3)
  1. TACHIPIRINA [Suspect]
     Active Substance: ACETAMINOPHEN
     Dosage: 5-6 TABLETS
     Route: 048
  2. TACHIPIRINA [Suspect]
     Active Substance: ACETAMINOPHEN
     Dosage: 4-5 TABLETS, SINGLE
     Route: 048
  3. TAVOR (LORAZEPAM) [Suspect]
     Active Substance: LORAZEPAM
     Dosage: 6-7 DOSAGE FORMS, SINGLE
     Route: 048

REACTIONS (4)
  - Intentional self-injury [Recovered/Resolved]
  - Intentional overdose [Recovered/Resolved]
  - Poisoning [Recovered/Resolved]
  - Drug abuse [Recovered/Resolved]

NARRATIVE: CASE EVENT DATE: 20170615
